FAERS Safety Report 13034062 (Version 1)
Quarter: 2016Q4

REPORT INFORMATION
  Report Type: Spontaneous
  Country: US (occurrence: US)
  Receive Date: 20161216
  Receipt Date: 20161216
  Transmission Date: 20170207
  Serious: Yes (Life-Threatening, Disabling)
  Sender: FDA-Public Use
  Company Number: None

PATIENT
  Age: 52 Year
  Sex: Male
  Weight: 81.65 kg

DRUGS (3)
  1. CLONAZEPAM 0.5MG TABS [Suspect]
     Active Substance: CLONAZEPAM
     Indication: DEPRESSION
     Route: 048
     Dates: start: 2013, end: 201605
  2. TRAMMADAL [Concomitant]
  3. CLONAZEPAM 0.5MG TABS [Suspect]
     Active Substance: CLONAZEPAM
     Indication: ANXIETY
     Route: 048
     Dates: start: 2013, end: 201605

REACTIONS (13)
  - Withdrawal syndrome [None]
  - Cognitive disorder [None]
  - Disinhibition [None]
  - Personality change [None]
  - Insomnia [None]
  - Activities of daily living impaired [None]
  - Amnesia [None]
  - Depression [None]
  - Dysgraphia [None]
  - Speech disorder [None]
  - Abulia [None]
  - Communication disorder [None]
  - Mental impairment [None]

NARRATIVE: CASE EVENT DATE: 20150303
